FAERS Safety Report 18680068 (Version 1)
Quarter: 2020Q4

REPORT INFORMATION
  Report Type: Report from Study
  Country: IE (occurrence: IE)
  Receive Date: 20201230
  Receipt Date: 20201230
  Transmission Date: 20210114
  Serious: Yes (Hospitalization, Other)
  Sender: FDA-Public Use
  Company Number: IE-TEVA-2020-IE-1862617

PATIENT
  Age: 42 Year
  Sex: Female

DRUGS (5)
  1. PROPANEDIOL [Concomitant]
     Dosage: FAST RELIEF
     Dates: start: 2019
  2. AJOVY [Suspect]
     Active Substance: FREMANEZUMAB-VFRM
     Indication: MIGRAINE
     Dosage: 225MG; ONCE MONTHLY
     Route: 065
     Dates: start: 20201102, end: 20201102
  3. AJOVY [Suspect]
     Active Substance: FREMANEZUMAB-VFRM
  4. PROPANEDIOL [Concomitant]
     Indication: ARRHYTHMIA
     Dosage: SLOW RELIEF
     Dates: start: 2019
  5. LANZOPRAZOLE [Concomitant]
     Active Substance: LANSOPRAZOLE
     Indication: DYSPEPSIA
     Dosage: DAILY
     Route: 065

REACTIONS (10)
  - Supraventricular tachycardia [Recovered/Resolved]
  - Dizziness [Recovered/Resolved]
  - Neck pain [Recovered/Resolved]
  - Neck injury [Recovered/Resolved]
  - Vertigo [Recovered/Resolved]
  - Vomiting [Recovered/Resolved]
  - Burning sensation [Recovered/Resolved]
  - Constipation [Not Recovered/Not Resolved]
  - Rash [Recovered/Resolved]
  - Pruritus [Recovered/Resolved]

NARRATIVE: CASE EVENT DATE: 202011
